FAERS Safety Report 7120675-6 (Version None)
Quarter: 2010Q4

REPORT INFORMATION
  Report Type: 
  Country: None (occurrence: None)
  Receive Date: 20101124
  Receipt Date: 20101118
  Transmission Date: 20110411
  Serious: Yes (Other)
  Sender: FDA-Public Use
  Company Number: US-US-EMD SERONO, INC.-7015596

PATIENT
  Sex: Female

DRUGS (5)
  1. REBIF [Suspect]
     Indication: MULTIPLE SCLEROSIS
     Route: 058
     Dates: start: 20090309
  2. METFORMIN HCL [Concomitant]
     Indication: DIABETES MELLITUS
  3. INSULIN [Concomitant]
     Indication: DIABETES MELLITUS
  4. LEXAPRO [Concomitant]
     Indication: MOOD SWINGS
     Dates: start: 20060101
  5. UNSPECIFIED MEDICATION [Concomitant]
     Indication: HYPERTENSION

REACTIONS (5)
  - DEPRESSION [None]
  - HYPERTENSION [None]
  - MOOD SWINGS [None]
  - MULTIPLE SCLEROSIS RELAPSE [None]
  - SUICIDAL BEHAVIOUR [None]
